FAERS Safety Report 4908413-6 (Version None)
Quarter: 2006Q1

REPORT INFORMATION
  Report Type: 
  Country: None (occurrence: None)
  Receive Date: 20060210
  Receipt Date: 20041215
  Transmission Date: 20060701
  Serious: No
  Sender: FDA-Public Use
  Company Number: US-GLAXOSMITHKLINE-A0537862A

PATIENT
  Age: 27 Year
  Sex: Female

DRUGS (1)
  1. PAXIL [Suspect]
     Indication: DEPRESSION
     Route: 048

REACTIONS (7)
  - CHEST PAIN [None]
  - CRYING [None]
  - DIZZINESS [None]
  - DRUG WITHDRAWAL SYNDROME [None]
  - HYPERSOMNIA [None]
  - PAIN IN EXTREMITY [None]
  - TREMOR [None]
